FAERS Safety Report 9633431 (Version 1)
Quarter: 2013Q4

REPORT INFORMATION
  Report Type: Spontaneous
  Country: AU (occurrence: AU)
  Receive Date: 20131021
  Receipt Date: 20131021
  Transmission Date: 20140711
  Serious: Yes (Other)
  Sender: FDA-Public Use
  Company Number: AU-ELI_LILLY_AND_COMPANY-AU201310004992

PATIENT
  Age: 75 Year
  Sex: Female
  Weight: 70 kg

DRUGS (3)
  1. ACTOS [Suspect]
     Dosage: 30 MG, UNKNOWN
     Route: 065
     Dates: start: 20070715, end: 20130521
  2. CRESTOR [Concomitant]
     Dosage: 5 MG, UNKNOWN
     Route: 065
  3. PANADOL OSTEO [Concomitant]
     Dosage: UNK, UNKNOWN
     Route: 065

REACTIONS (1)
  - Breast cancer [Not Recovered/Not Resolved]
